FAERS Safety Report 15558745 (Version 2)
Quarter: 2018Q4

REPORT INFORMATION
  Report Type: Spontaneous
  Country: US (occurrence: US)
  Receive Date: 20181029
  Receipt Date: 20181029
  Transmission Date: 20190205
  Serious: Yes (Hospitalization)
  Sender: FDA-Public Use
  Company Number: US-009507513-1810USA010624

PATIENT
  Age: 20 Year
  Sex: Female

DRUGS (19)
  1. PREDNISONE. [Concomitant]
     Active Substance: PREDNISONE
  2. URSODIOL. [Concomitant]
     Active Substance: URSODIOL
  3. LINEZOLID. [Concomitant]
     Active Substance: LINEZOLID
  4. TRAMADOL HYDROCHLORIDE. [Concomitant]
     Active Substance: TRAMADOL HYDROCHLORIDE
  5. TRIAMCINOLONE [Concomitant]
     Active Substance: TRIAMCINOLONE
  6. VITAMIN D [Concomitant]
     Active Substance: CHOLECALCIFEROL
  7. CETIRIZINE HYDROCHLORIDE. [Concomitant]
     Active Substance: CETIRIZINE HYDROCHLORIDE
  8. LEVOFLOXACIN. [Concomitant]
     Active Substance: LEVOFLOXACIN
  9. CREON (PANCRELIPASE) [Concomitant]
  10. PROAIR HFA [Concomitant]
     Active Substance: ALBUTEROL SULFATE
  11. ALBUTEROL. [Concomitant]
     Active Substance: ALBUTEROL
  12. SINGULAIR [Suspect]
     Active Substance: MONTELUKAST SODIUM
     Indication: CYSTIC FIBROSIS
     Dosage: 10 MILLIGRAM, QD(DAILY)
     Route: 048
     Dates: start: 20130620
  13. TOBRAMYCIN. [Suspect]
     Active Substance: TOBRAMYCIN
     Indication: CYSTIC FIBROSIS
     Dosage: 300 MILLIGRAM, BID (INHALED TWICE A DAY)(STRENGTH:300/5MG/ML)
     Route: 055
     Dates: start: 20180330
  14. BACTRIM [Concomitant]
     Active Substance: SULFAMETHOXAZOLE\TRIMETHOPRIM
  15. PULMOZYME [Concomitant]
     Active Substance: DORNASE ALFA
  16. LINZESS [Concomitant]
     Active Substance: LINACLOTIDE
  17. SODIUM CHLORIDE. [Concomitant]
     Active Substance: SODIUM CHLORIDE
  18. PROMETHAZINE [Concomitant]
     Active Substance: PROMETHAZINE\PROMETHAZINE HYDROCHLORIDE
  19. HYDROCODONE [Concomitant]
     Active Substance: HYDROCODONE

REACTIONS (2)
  - Adverse event [Unknown]
  - Cystic fibrosis [Recovered/Resolved]

NARRATIVE: CASE EVENT DATE: 20180720
